FAERS Safety Report 5162388-6 (Version None)
Quarter: 2006Q4

REPORT INFORMATION
  Report Type: 
  Country: None (occurrence: None)
  Receive Date: 20061129
  Receipt Date: 20061129
  Transmission Date: 20070319
  Serious: Yes (Other)
  Sender: FDA-Public Use
  Company Number: None

PATIENT
  Age: 40 Year
  Sex: Female
  Weight: 56.6996 kg

DRUGS (1)
  1. LEVAQUIN [Suspect]
     Indication: BRONCHITIS
     Dosage: 500MG BID PO
     Route: 048
     Dates: start: 20061023, end: 20061026

REACTIONS (2)
  - DRUG HYPERSENSITIVITY [None]
  - STEVENS-JOHNSON SYNDROME [None]
